FAERS Safety Report 8951676 (Version 3)
Quarter: 2023Q1

REPORT INFORMATION
  Report Type: Spontaneous
  Country: FR (occurrence: FR)
  Receive Date: 20121204
  Receipt Date: 20230330
  Transmission Date: 20230418
  Serious: Yes (Other)
  Sender: FDA-Public Use
  Company Number: PHHY2012FR110748

PATIENT
  Age: 57 Month
  Sex: Female

DRUGS (10)
  1. DOXORUBICIN [Suspect]
     Active Substance: DOXORUBICIN
     Indication: Burkitt^s lymphoma stage IV
     Dosage: UNK
     Route: 065
  2. PREDNISOLONE [Suspect]
     Active Substance: PREDNISOLONE
     Indication: Burkitt^s lymphoma stage IV
     Dosage: UNK
     Route: 065
  3. METHOTREXATE [Suspect]
     Active Substance: METHOTREXATE
     Indication: Burkitt^s lymphoma stage IV
     Dosage: UNK
     Route: 065
  4. CYTARABINE [Suspect]
     Active Substance: CYTARABINE
     Indication: Burkitt^s lymphoma stage IV
     Dosage: UNK
     Route: 065
  5. ETOPOSIDE [Suspect]
     Active Substance: ETOPOSIDE
     Indication: Burkitt^s lymphoma stage IV
     Dosage: UNK
     Route: 065
  6. VINCRISTINE [Suspect]
     Active Substance: VINCRISTINE
     Indication: Burkitt^s lymphoma stage IV
     Dosage: UNK
     Route: 065
  7. PREDNISONE [Suspect]
     Active Substance: PREDNISONE
     Indication: Burkitt^s lymphoma stage IV
     Dosage: UNK
     Route: 065
  8. CYCLOPHOSPHAMIDE [Suspect]
     Active Substance: CYCLOPHOSPHAMIDE
     Indication: Burkitt^s lymphoma stage IV
     Dosage: UNK
     Route: 065
  9. RITUXIMAB [Suspect]
     Active Substance: RITUXIMAB
     Indication: Burkitt^s lymphoma stage IV
     Dosage: UNK
     Route: 065
  10. ONCOVIN [Suspect]
     Active Substance: VINCRISTINE SULFATE
     Indication: Burkitt^s lymphoma stage IV
     Dosage: UNK
     Route: 065

REACTIONS (4)
  - Acute respiratory distress syndrome [Unknown]
  - Malnutrition [Unknown]
  - Neutropenia [Unknown]
  - Mucosal inflammation [Unknown]
